FAERS Safety Report 6941425-X (Version None)
Quarter: 2010Q3

REPORT INFORMATION
  Report Type: 
  Country: None (occurrence: None)
  Receive Date: 20100825
  Receipt Date: 20100823
  Transmission Date: 20110219
  Serious: Yes (Life-Threatening, Hospitalization)
  Sender: FDA-Public Use
  Company Number: DE-CEPHALON-2010004489

PATIENT
  Sex: Female

DRUGS (1)
  1. TRISENOX [Suspect]
     Route: 041

REACTIONS (1)
  - RESPIRATORY FAILURE [None]
